FAERS Safety Report 21943773 (Version 1)
Quarter: 2023Q1

REPORT INFORMATION
  Report Type: Spontaneous
  Country: GB (occurrence: GB)
  Receive Date: 20230202
  Receipt Date: 20230202
  Transmission Date: 20230417
  Serious: Yes (Hospitalization)
  Sender: FDA-Public Use
  Company Number: GB-TEVA-2023-GB-2852053

PATIENT
  Age: 51 Year
  Sex: Male
  Weight: 80 kg

DRUGS (1)
  1. WILZIN [Suspect]
     Active Substance: ZINC ACETATE
     Indication: Hepato-lenticular degeneration
     Dosage: 150 MILLIGRAM DAILY;
     Route: 065
     Dates: start: 20160901, end: 20210930

REACTIONS (5)
  - Feeling cold [Unknown]
  - Balance disorder [Unknown]
  - Fine motor skill dysfunction [Unknown]
  - Peroneal nerve palsy [Unknown]
  - Copper deficiency [Recovering/Resolving]

NARRATIVE: CASE EVENT DATE: 20180301
